FAERS Safety Report 4336962-0 (Version None)
Quarter: 2004Q1

REPORT INFORMATION
  Report Type: 
  Country: None (occurrence: None)
  Receive Date: 20040329
  Receipt Date: 20040205
  Transmission Date: 20041129
  Serious: No
  Sender: FDA-Public Use
  Company Number: USA040258659

PATIENT
  Age: 4 Year
  Sex: Male

DRUGS (1)
  1. STRATTERA [Suspect]
     Dosage: 18 MG/DAY
     Dates: start: 20040202

REACTIONS (2)
  - RETCHING [None]
  - VOMITING [None]
